FAERS Safety Report 16961334 (Version 2)
Quarter: 2023Q1

REPORT INFORMATION
  Report Type: Spontaneous
  Country: CA (occurrence: CA)
  Receive Date: 20191025
  Receipt Date: 20230310
  Transmission Date: 20230418
  Serious: Yes (Life-Threatening, Hospitalization, Other)
  Sender: FDA-Public Use
  Company Number: CA-PFIZER INC-2019457896

PATIENT
  Age: 10 Year
  Sex: Male

DRUGS (12)
  1. LORAZEPAM [Suspect]
     Active Substance: LORAZEPAM
     Indication: Dystonia
     Dosage: UNK
  2. LORAZEPAM [Suspect]
     Active Substance: LORAZEPAM
     Dosage: UNK
     Route: 048
  3. MIDAZOLAM [Suspect]
     Active Substance: MIDAZOLAM
     Indication: Dystonia
     Dosage: UNK
     Route: 040
  4. MIDAZOLAM HYDROCHLORIDE [Suspect]
     Active Substance: MIDAZOLAM HYDROCHLORIDE
     Indication: Dystonia
     Dosage: UNK
     Route: 040
  5. CHLORAL HYDRATE [Suspect]
     Active Substance: CHLORAL HYDRATE
     Indication: Dystonia
     Dosage: UNK
     Route: 065
  6. CHLORAL HYDRATE [Suspect]
     Active Substance: CHLORAL HYDRATE
     Dosage: UNK
     Route: 048
  7. CHLORPROMAZINE [Suspect]
     Active Substance: CHLORPROMAZINE
     Indication: Hyperkinesia
     Dosage: UNK
     Route: 065
  8. CLONIDINE [Suspect]
     Active Substance: CLONIDINE
     Indication: Dystonia
     Dosage: UNK (1 EVERY 4 HOUR(S))
  9. CLONIDINE [Suspect]
     Active Substance: CLONIDINE
     Dosage: UNK (1 EVERY 4 HOUR(S))
     Route: 048
  10. KETAMINE [Suspect]
     Active Substance: KETAMINE
     Indication: Dystonia
     Dosage: UNK
     Route: 040
  11. KETAMINE [Suspect]
     Active Substance: KETAMINE
     Dosage: UNK
     Route: 040
  12. DEXMEDETOMIDINE [Concomitant]
     Active Substance: DEXMEDETOMIDINE
     Indication: Dystonia
     Dosage: 1.2 UG/KG, UNK (1 EVERY 1 HOUR(S))
     Route: 041

REACTIONS (2)
  - Off label use [Unknown]
  - Drug ineffective for unapproved indication [Unknown]
